FAERS Safety Report 15267919 (Version 1)
Quarter: 2018Q3

REPORT INFORMATION
  Report Type: Spontaneous
  Country: US (occurrence: US)
  Receive Date: 20180725
  Receipt Date: 20180725
  Transmission Date: 20181010
  Serious: No
  Sender: FDA-Public Use
  Company Number: None

PATIENT
  Sex: Female

DRUGS (1)
  1. LOVENOX [Suspect]
     Active Substance: ENOXAPARIN SODIUM
     Indication: HYSTERECTOMY

REACTIONS (7)
  - Injection site vesicles [None]
  - Injection site swelling [None]
  - Scab [None]
  - Injection site discolouration [None]
  - Injection site erythema [None]
  - Scar [None]
  - Haemorrhage [None]

NARRATIVE: CASE EVENT DATE: 20180522
